FAERS Safety Report 24583125 (Version 1)
Quarter: 2024Q4

REPORT INFORMATION
  Report Type: Report from Study
  Country: US (occurrence: US)
  Receive Date: 20241106
  Receipt Date: 20241106
  Transmission Date: 20250114
  Serious: Yes (Other)
  Sender: ALEXION PHARMACEUTICALS
  Company Number: US-AstraZeneca-CH-00735061A

PATIENT

DRUGS (16)
  1. BENRALIZUMAB [Suspect]
     Active Substance: BENRALIZUMAB
     Indication: Asthma
     Dosage: 30 MICROGRAM, Q4W
  2. BENRALIZUMAB [Suspect]
     Active Substance: BENRALIZUMAB
     Dosage: 30 MICROGRAM, Q4W
  3. BENRALIZUMAB [Suspect]
     Active Substance: BENRALIZUMAB
     Dosage: 30 MICROGRAM, Q4W
  4. BENRALIZUMAB [Suspect]
     Active Substance: BENRALIZUMAB
     Dosage: 30 MICROGRAM, Q4W
  5. TESTOSTERONE [Concomitant]
     Active Substance: TESTOSTERONE
  6. TRELEGY ELLIPTA [Concomitant]
     Active Substance: FLUTICASONE FUROATE\UMECLIDINIUM BROMIDE\VILANTEROL TRIFENATATE
  7. VENTOLIN [Concomitant]
     Active Substance: ALBUTEROL SULFATE
  8. ALBUTEROL [Concomitant]
     Active Substance: ALBUTEROL
  9. COLISTIMETHATE [Concomitant]
     Active Substance: COLISTIMETHATE SODIUM
  10. MONTELUKAST [Concomitant]
     Active Substance: MONTELUKAST
  11. NEXIUM [Concomitant]
     Active Substance: ESOMEPRAZOLE MAGNESIUM
  12. GABAPENTIN [Concomitant]
     Active Substance: GABAPENTIN
  13. BUPRENORPHINE [Concomitant]
     Active Substance: BUPRENORPHINE
  14. VITAMIN D [Concomitant]
     Active Substance: VITAMIN D NOS
  15. TYLENOL [Concomitant]
     Active Substance: ACETAMINOPHEN
  16. TOBRAMYCIN [Concomitant]
     Active Substance: TOBRAMYCIN\TOBRAMYCIN SULFATE

REACTIONS (2)
  - Pneumonia [Unknown]
  - Drug ineffective [Unknown]
